FAERS Safety Report 5333805-3 (Version None)
Quarter: 2007Q2

REPORT INFORMATION
  Report Type: 
  Country: None (occurrence: None)
  Receive Date: 20070524
  Receipt Date: 20070516
  Transmission Date: 20071010
  Serious: Yes (Other)
  Sender: FDA-Public Use
  Company Number: US-ELI_LILLY_AND_COMPANY-US200704005282

PATIENT
  Sex: Male

DRUGS (5)
  1. GLIPIZIDE [Concomitant]
     Dosage: 5 MG, UNK
  2. BYETTA [Suspect]
     Indication: DIABETES MELLITUS NON-INSULIN-DEPENDENT
     Dosage: 5 UG, 2/D
     Route: 058
     Dates: start: 20061001, end: 20061201
  3. BYETTA [Suspect]
     Dosage: 10 UG, 2/D
     Route: 058
     Dates: start: 20061201
  4. GLUCOPHAGE [Concomitant]
     Dosage: 500 MG, UNKNOWN
     Route: 065
  5. LIPITOR [Concomitant]
     Dosage: UNK, UNKNOWN
     Route: 065

REACTIONS (5)
  - ASTHENIA [None]
  - BLOOD GLUCOSE DECREASED [None]
  - DIABETIC COMA [None]
  - EYE ROLLING [None]
  - TREMOR [None]
